FAERS Safety Report 19431692 (Version 2)
Quarter: 2021Q2

REPORT INFORMATION
  Report Type: Report from Study
  Country: None (occurrence: US)
  Receive Date: 20210618
  Receipt Date: 20210628
  Transmission Date: 20210717
  Serious: Yes (Other)
  Sender: FDA-Public Use
  Company Number: US-ABBVIE-21K-163-3948231-00

PATIENT
  Age: 70 Year
  Sex: Male

DRUGS (1)
  1. VENCLEXTA [Suspect]
     Active Substance: VENETOCLAX
     Indication: ACUTE MYELOID LEUKAEMIA
     Route: 048
     Dates: start: 202106

REACTIONS (7)
  - Blood count abnormal [Unknown]
  - Pulmonary oedema [Unknown]
  - Blood pressure increased [Unknown]
  - Cardiac disorder [Unknown]
  - Wheezing [Unknown]
  - Dyspnoea [Unknown]
  - Oxygen saturation decreased [Unknown]

NARRATIVE: CASE EVENT DATE: 202106
